FAERS Safety Report 9414585 (Version 3)
Quarter: 2013Q3

REPORT INFORMATION
  Report Type: Spontaneous
  Country: DE (occurrence: DE)
  Receive Date: 20130717
  Receipt Date: 20130808
  Transmission Date: 20140515
  Serious: Yes (Hospitalization)
  Sender: FDA-Public Use
  Company Number: SYM-2013-06301

PATIENT
  Age: 76 Year
  Sex: Male

DRUGS (14)
  1. 5 FU [Suspect]
     Indication: COLORECTAL CANCER METASTATIC
     Route: 040
     Dates: start: 20130703, end: 20130603
  2. AFLIBERCEPT [Suspect]
     Indication: COLORECTAL CANCER METASTATIC
     Route: 042
     Dates: start: 20130603, end: 20130603
  3. IRINOTECAN [Suspect]
     Indication: COLORECTAL CANCER METASTATIC
     Route: 042
     Dates: start: 20130603, end: 20130603
  4. LEUCOVORIN [Suspect]
     Indication: COLORECTAL CANCER METASTATIC
     Route: 042
     Dates: start: 20130603, end: 20130603
  5. ANTISEPTICS (ANTISEPTICS) [Concomitant]
  6. ACE INHIBITOR NOS (ACE INHIBITORS) [Concomitant]
  7. BETA BLOCKING AGENTS (BETA BLOCKING AGENTS) [Concomitant]
  8. PLATELET AGGREGATION INHIBITORS (PLATELET AGGREGATION INHIBITORS EXCL. HEPARIN) [Concomitant]
  9. PROTON PUMP INHIBITORS (PROTON PUMP INHIBITORS) [Concomitant]
  10. DIURETICS (DIURETICS) [Concomitant]
  11. CORTICOSTEROIDS (CORTICOSTEROIDS) [Concomitant]
  12. SEROTONIN ANTAGONISTS (SEROTONIN ANTAGONISTS) [Concomitant]
  13. ANTICHOLINERGICS (ANTICHOLINERGICS) [Concomitant]
  14. HYPNOTICS AND SEDATIVES (HYPNOOTICS AND SEDATIVES) [Concomitant]

REACTIONS (1)
  - Neutropenia [None]
